FAERS Safety Report 8291263-3 (Version None)
Quarter: 2012Q2

REPORT INFORMATION
  Report Type: 
  Country: None (occurrence: None)
  Receive Date: 20120417
  Receipt Date: 20120410
  Transmission Date: 20120825
  Serious: Yes (Hospitalization)
  Sender: FDA-Public Use
  Company Number: US-BAYER-2011-123827

PATIENT
  Age: 30 Year
  Sex: Female
  Weight: 71.202 kg

DRUGS (6)
  1. ABILIFY [Concomitant]
     Indication: DEPRESSION
     Dosage: UNK
     Dates: start: 19880101
  2. YASMIN [Suspect]
     Indication: CONTRACEPTION
     Dosage: UNK
     Dates: start: 20020401, end: 20030301
  3. VALTREX [Concomitant]
     Indication: HERPES SIMPLEX
     Dosage: AS NEEDED
     Route: 048
     Dates: start: 19970101
  4. CYMBALTA [Concomitant]
     Indication: DEPRESSION
     Dosage: UNK
     Dates: start: 19880101
  5. YASMIN [Suspect]
     Dosage: UNK
     Dates: start: 20030301
  6. ZOLOFT [Concomitant]
     Indication: DEPRESSION
     Dosage: UNK

REACTIONS (8)
  - ISCHAEMIC STROKE [None]
  - MENTAL DISORDER [None]
  - GENERAL PHYSICAL HEALTH DETERIORATION [None]
  - EMOTIONAL DISTRESS [None]
  - CONFUSIONAL STATE [None]
  - PAIN [None]
  - ANXIETY [None]
  - APHASIA [None]
